FAERS Safety Report 5800355-7 (Version None)
Quarter: 2008Q3

REPORT INFORMATION
  Report Type: 
  Country: None (occurrence: None)
  Receive Date: 20080702
  Receipt Date: 20080702
  Transmission Date: 20090109
  Serious: No
  Sender: FDA-Public Use
  Company Number: None

PATIENT
  Sex: Female
  Weight: 77.1115 kg

DRUGS (2)
  1. LYRICA [Suspect]
     Indication: FIBROMYALGIA
     Dosage: 200 TWICE A DAY PO
     Route: 048
     Dates: start: 20071201, end: 20080515
  2. LYRICA [Suspect]
     Indication: OSTEOARTHRITIS
     Dosage: 200 TWICE A DAY PO
     Route: 048
     Dates: start: 20071201, end: 20080515

REACTIONS (6)
  - DIZZINESS [None]
  - HYPOAESTHESIA [None]
  - JOINT SWELLING [None]
  - OEDEMA PERIPHERAL [None]
  - PITTING OEDEMA [None]
  - WEIGHT INCREASED [None]
